FAERS Safety Report 4948067-6 (Version None)
Quarter: 2006Q1

REPORT INFORMATION
  Report Type: 
  Country: None (occurrence: None)
  Receive Date: 20060320
  Receipt Date: 20060306
  Transmission Date: 20060701
  Serious: Yes (Hospitalization)
  Sender: FDA-Public Use
  Company Number: US-JNJFOC-20060302570

PATIENT
  Age: 45 Year
  Sex: Female

DRUGS (4)
  1. INFLIXIMAB [Suspect]
     Indication: CROHN'S DISEASE
     Dosage: EVERY 4-8 WEEKS
     Route: 042
  2. MERCAPTOPURINE [Concomitant]
     Indication: CROHN'S DISEASE
  3. PREDNISONE [Concomitant]
  4. LEVOTHYROXINE SODIUM [Concomitant]

REACTIONS (1)
  - CYTOMEGALOVIRUS HEPATITIS [None]
